FAERS Safety Report 17552345 (Version 3)
Quarter: 2020Q1

REPORT INFORMATION
  Report Type: Report from Study
  Country: DE (occurrence: DE)
  Receive Date: 20200317
  Receipt Date: 20200331
  Transmission Date: 20200409
  Serious: No
  Sender: FDA-Public Use
  Company Number: DE-BAUSCH-BL-2020-008208

PATIENT
  Age: 25 Year
  Sex: Female
  Weight: 61.5 kg

DRUGS (2)
  1. NOVORAPID [Concomitant]
     Active Substance: INSULIN ASPART
     Indication: DIABETES MELLITUS
     Dosage: 24 H, 0.9 BREAD UNITS PER HOUR WITH AN INSULIN PUMP
     Route: 058
  2. KYNTHEUM [Suspect]
     Active Substance: BRODALUMAB
     Indication: PSORIASIS
     Route: 058
     Dates: start: 20191105, end: 20200105

REACTIONS (6)
  - Fatigue [Recovered/Resolved]
  - General physical health deterioration [Recovered/Resolved]
  - Drug ineffective [Unknown]
  - Sleep disorder [Recovered/Resolved]
  - Depression [Recovered/Resolved]
  - Muscle spasms [Recovered/Resolved]

NARRATIVE: CASE EVENT DATE: 201912
